FAERS Safety Report 18987411 (Version 1)
Quarter: 2021Q1

REPORT INFORMATION
  Report Type: Report from Study
  Country: US (occurrence: US)
  Receive Date: 20210309
  Receipt Date: 20210309
  Transmission Date: 20210420
  Serious: Yes (Other)
  Sender: FDA-Public Use
  Company Number: US-IGSA-SR10004854

PATIENT
  Age: 61 Year
  Sex: Male
  Weight: 93 kg

DRUGS (17)
  1. PROLASTIN?C [Suspect]
     Active Substance: .ALPHA.1-PROTEINASE INHIBITOR HUMAN
     Dosage: UNK, Q.WK.
     Dates: start: 20170511
  2. OMEPRAZOLE. [Concomitant]
     Active Substance: OMEPRAZOLE
  3. K?PHOS [Concomitant]
     Active Substance: POTASSIUM PHOSPHATE, MONOBASIC
  4. PROLASTIN?C [Suspect]
     Active Substance: .ALPHA.1-PROTEINASE INHIBITOR HUMAN
     Dosage: UNK, Q.WK.
     Route: 042
  5. PROLASTIN?C [Suspect]
     Active Substance: .ALPHA.1-PROTEINASE INHIBITOR HUMAN
     Indication: ALPHA-1 ANTITRYPSIN DEFICIENCY
     Dosage: UNK, Q.WK.
     Route: 042
     Dates: start: 20170412
  6. PROLASTIN?C [Suspect]
     Active Substance: .ALPHA.1-PROTEINASE INHIBITOR HUMAN
     Dosage: UNK, Q.WK.
     Route: 042
  7. PROAIR HFA [Concomitant]
     Active Substance: ALBUTEROL SULFATE
  8. GABAPENTIN. [Concomitant]
     Active Substance: GABAPENTIN
  9. GLIPIZIDE. [Concomitant]
     Active Substance: GLIPIZIDE
  10. FENOFIBRATE. [Concomitant]
     Active Substance: FENOFIBRATE
  11. ASPIRIN                            /00002701/ [Concomitant]
     Active Substance: ASPIRIN
  12. PROLASTIN?C [Suspect]
     Active Substance: .ALPHA.1-PROTEINASE INHIBITOR HUMAN
     Dosage: UNK, Q.WK.
     Route: 042
  13. MORPHINE SULPHATE [Concomitant]
     Active Substance: MORPHINE SULFATE
  14. SIMVASTATIN. [Concomitant]
     Active Substance: SIMVASTATIN
  15. METOPROLOL. [Concomitant]
     Active Substance: METOPROLOL
  16. PROLASTIN?C [Suspect]
     Active Substance: .ALPHA.1-PROTEINASE INHIBITOR HUMAN
     Dosage: UNK, Q.WK.
     Route: 042
  17. METFORMIN [Suspect]
     Active Substance: METFORMIN HYDROCHLORIDE

REACTIONS (5)
  - Tunnel vision [Not Recovered/Not Resolved]
  - Fatigue [Not Recovered/Not Resolved]
  - Diplopia [Not Recovered/Not Resolved]
  - Balance disorder [Not Recovered/Not Resolved]
  - Loss of consciousness [Recovered/Resolved]

NARRATIVE: CASE EVENT DATE: 201703
